FAERS Safety Report 20925813 (Version 1)
Quarter: 2022Q2

REPORT INFORMATION
  Report Type: Spontaneous
  Country: FR (occurrence: FR)
  Receive Date: 20220607
  Receipt Date: 20220607
  Transmission Date: 20220721
  Serious: Yes (Other)
  Sender: FDA-Public Use
  Company Number: None

PATIENT
  Age: 34 Year
  Sex: Male

DRUGS (3)
  1. GABAPENTIN [Suspect]
     Active Substance: GABAPENTIN
     Dosage: 3600 MG, DAILY
     Route: 048
  2. LIDOCAINE [Suspect]
     Active Substance: LIDOCAINE
     Dosage: 1 DF, DAILY
     Route: 003
  3. SKENAN [Suspect]
     Active Substance: MORPHINE SULFATE
     Dosage: 2 DF, DAILY
     Route: 048

REACTIONS (1)
  - Drug use disorder [Not Recovered/Not Resolved]
